FAERS Safety Report 18763445 (Version 1)
Quarter: 2021Q1

REPORT INFORMATION
  Report Type: Other
  Country: BE (occurrence: BE)
  Receive Date: 20210120
  Receipt Date: 20210120
  Transmission Date: 20210419
  Serious: Yes (Hospitalization, Other)
  Sender: FDA-Public Use
  Company Number: BE-APPCO PHARMA LLC-2105585

PATIENT
  Age: 65 Year
  Sex: Male

DRUGS (4)
  1. GLICLAZIDE [Concomitant]
     Active Substance: GLICLAZIDE
     Route: 065
  2. LECARNIDIPINE [Concomitant]
     Active Substance: LERCANIDIPINE
     Route: 065
  3. HYDROXYCHLOROQUINE SULFATE. [Suspect]
     Active Substance: HYDROXYCHLOROQUINE SULFATE
     Indication: COVID-19 PNEUMONIA
     Route: 065
  4. AZITHROMYCIN ANHYDROUS. [Concomitant]
     Active Substance: AZITHROMYCIN ANHYDROUS
     Route: 065

REACTIONS (3)
  - Haemolytic anaemia [Recovering/Resolving]
  - Acute kidney injury [Recovering/Resolving]
  - Off label use [Unknown]
